FAERS Safety Report 14430762 (Version 1)
Quarter: 2018Q1

REPORT INFORMATION
  Report Type: Spontaneous
  Country: US (occurrence: US)
  Receive Date: 20180123
  Receipt Date: 20180123
  Transmission Date: 20180509
  Serious: Yes (Disabling)
  Sender: FDA-Public Use
  Company Number: None

PATIENT
  Age: 11 Year
  Sex: Female
  Weight: 31.5 kg

DRUGS (6)
  1. PROBIOTICS [Concomitant]
     Active Substance: PROBIOTICS NOS
  2. SMARTYPANTS FOR KIDS [Concomitant]
  3. CELEXA [Concomitant]
     Active Substance: CITALOPRAM HYDROBROMIDE
  4. MIRALAX [Suspect]
     Active Substance: POLYETHYLENE GLYCOL 3350
     Indication: CONSTIPATION
     Route: 048
     Dates: start: 20090901, end: 20171130
  5. MAGNESIUM [Concomitant]
     Active Substance: MAGNESIUM
  6. MULTIVITAMIN [Concomitant]
     Active Substance: VITAMINS

REACTIONS (12)
  - Obsessive-compulsive disorder [None]
  - Irritability [None]
  - Serum ferritin decreased [None]
  - Weight increased [None]
  - Mood swings [None]
  - Insomnia [None]
  - Suicidal ideation [None]
  - Depression [None]
  - Sensory disturbance [None]
  - Anxiety [None]
  - Gastrointestinal disorder [None]
  - Anger [None]

NARRATIVE: CASE EVENT DATE: 20170101
